FAERS Safety Report 8892397 (Version 2)
Quarter: 2012Q4

REPORT INFORMATION
  Report Type: 
  Country: US (occurrence: US)
  Receive Date: 20121107
  Receipt Date: 20121121
  Transmission Date: 20130627
  Serious: Yes (Hospitalization, Congenital Anomaly)
  Sender: FDA-Public Use
  Company Number: US-GLAXOSMITHKLINE-A1000160A

PATIENT
  Age: 0 Year
  Sex: Male

DRUGS (7)
  1. PAXIL [Suspect]
     Indication: PRODUCT USED FOR UNKNOWN INDICATION
     Route: 064
     Dates: start: 20010109
  2. FLUOXETINE [Concomitant]
     Route: 064
     Dates: start: 200203
  3. PRENATAL VITAMINS [Concomitant]
  4. IRON [Concomitant]
  5. IV ANTIBIOTICS [Concomitant]
  6. MAGNESIUM SULFATE [Concomitant]
  7. DEXAMETHASONE [Concomitant]

REACTIONS (3)
  - Porencephaly [Unknown]
  - Respiratory distress [Unknown]
  - Foetal exposure during pregnancy [Unknown]
